FAERS Safety Report 5484951-5 (Version None)
Quarter: 2007Q4

REPORT INFORMATION
  Report Type: 
  Country: None (occurrence: None)
  Receive Date: 20071011
  Receipt Date: 20070726
  Transmission Date: 20080405
  Serious: Yes (Other)
  Sender: FDA-Public Use
  Company Number: 17086

PATIENT
  Age: 74 Year
  Sex: Male

DRUGS (8)
  1. EPIRUBICIN [Suspect]
     Indication: OESOPHAGEAL ADENOCARCINOMA
  2. METHOTREXATE [Suspect]
     Indication: OESOPHAGEAL ADENOCARCINOMA
  3. MITOMYCIN [Suspect]
     Indication: OESOPHAGEAL ADENOCARCINOMA
  4. ETOPOSIDE [Suspect]
     Indication: OESOPHAGEAL ADENOCARCINOMA
  5. FLUOROURACIL [Suspect]
     Indication: OESOPHAGEAL ADENOCARCINOMA
  6. RADIOTHERAPY [Concomitant]
  7. PROLEUKIN [Concomitant]
  8. LEUCOVORIN [Concomitant]

REACTIONS (3)
  - MYELODYSPLASTIC SYNDROME [None]
  - NO THERAPEUTIC RESPONSE [None]
  - RASH PRURITIC [None]
